FAERS Safety Report 7074772-4 (Version None)
Quarter: 2010Q4

REPORT INFORMATION
  Report Type: 
  Country: None (occurrence: None)
  Receive Date: 20101029
  Receipt Date: 20101028
  Transmission Date: 20110411
  Serious: Yes (Hospitalization)
  Sender: FDA-Public Use
  Company Number: DE-WYE-G06874210

PATIENT
  Age: 72 Year
  Sex: Male
  Weight: 84 kg

DRUGS (5)
  1. TYGACIL [Suspect]
     Indication: PANCREATITIS NECROTISING
     Dosage: 100 MG, FREQUENCY UNKNOWN
     Route: 042
     Dates: start: 20100923, end: 20101002
  2. REMERGIL [Concomitant]
     Indication: DEPRESSION
     Dosage: 45 MG, FREQUENCY UNKNOWN
     Route: 048
  3. VENLAFAXINE HYDROCHLORIDE [Concomitant]
     Indication: DEPRESSION
     Dosage: 75 MG, FREQUENCY UNKNOWN
     Route: 048
  4. DIFLUCAN [Concomitant]
     Indication: PANCREATITIS NECROTISING
     Dosage: 200 MG, FREQUENCY UNKNOWN
     Dates: start: 20100923, end: 20101004
  5. METRONIDAZOLE [Concomitant]
     Indication: PSEUDOMEMBRANOUS COLITIS
     Dosage: 500 MG, FREQUENCY UNKNOWN
     Route: 048
     Dates: start: 20100911, end: 20101004

REACTIONS (5)
  - DIZZINESS [None]
  - FATIGUE [None]
  - HYPONATRAEMIA [None]
  - INAPPROPRIATE ANTIDIURETIC HORMONE SECRETION [None]
  - SOMNOLENCE [None]
